FAERS Safety Report 21410893 (Version 1)
Quarter: 2022Q4

REPORT INFORMATION
  Report Type: Spontaneous
  Country: US (occurrence: None)
  Receive Date: 20221004
  Receipt Date: 20221004
  Transmission Date: 20230113
  Serious: No
  Sender: FDA-Public Use
  Company Number: None

PATIENT
  Age: 51 Year
  Sex: Male
  Weight: 110.25 kg

DRUGS (4)
  1. OZEMPIC [Suspect]
     Active Substance: SEMAGLUTIDE
  2. RYBELSUS [Suspect]
     Active Substance: SEMAGLUTIDE
  3. LOSARTAN [Concomitant]
     Active Substance: LOSARTAN
  4. Ozempec 1mg [Concomitant]

REACTIONS (1)
  - Allodynia [None]

NARRATIVE: CASE EVENT DATE: 20221001
